FAERS Safety Report 8200345-3 (Version None)
Quarter: 2012Q1

REPORT INFORMATION
  Report Type: 
  Country: None (occurrence: None)
  Receive Date: 20120306
  Receipt Date: 20120225
  Transmission Date: 20120608
  Serious: Yes (Hospitalization)
  Sender: FDA-Public Use
  Company Number: AUR-APL-2012-01183

PATIENT
  Age: 73 Year
  Sex: Male

DRUGS (3)
  1. BLOPRESS (CANDESARTAN CILEXETIL) [Concomitant]
  2. COLCHICINE [Concomitant]
  3. AMOXICILLIN [Suspect]
     Indication: GOUT
     Dosage: 1 GM, 1 D, ORAL
     Route: 048
     Dates: start: 20110820, end: 20110830

REACTIONS (4)
  - DYSPNOEA [None]
  - RENAL FAILURE ACUTE [None]
  - DIARRHOEA [None]
  - METABOLIC ACIDOSIS [None]
